FAERS Safety Report 6785157-X (Version None)
Quarter: 2010Q2

REPORT INFORMATION
  Report Type: 
  Country: None (occurrence: None)
  Receive Date: 20100618
  Receipt Date: 20100607
  Transmission Date: 20101027
  Serious: Yes (Other)
  Sender: FDA-Public Use
  Company Number: DE-1182169

PATIENT
  Sex: Female

DRUGS (1)
  1. AZOPT [Suspect]
     Dosage: NI; OPHTHALMIC
     Route: 047
     Dates: start: 20100601

REACTIONS (4)
  - LARYNGITIS [None]
  - OESOPHAGITIS [None]
  - PRODUCTIVE COUGH [None]
  - SINUSITIS [None]
